FAERS Safety Report 24868610 (Version 1)
Quarter: 2025Q1

REPORT INFORMATION
  Report Type: Spontaneous
  Country: CN (occurrence: CN)
  Receive Date: 20250121
  Receipt Date: 20250121
  Transmission Date: 20250409
  Serious: Yes (Other)
  Sender: MYLAN
  Company Number: CN-MYLANLABS-2025M1003744

PATIENT
  Age: 22 Year
  Sex: Male
  Weight: 70 kg

DRUGS (2)
  1. LYRICA [Suspect]
     Active Substance: PREGABALIN
     Indication: Headache
     Dosage: 10 DOSAGE FORM, QD
     Route: 048
     Dates: start: 20241211, end: 20241211
  2. LYRICA [Suspect]
     Active Substance: PREGABALIN
     Indication: Insomnia

REACTIONS (2)
  - Mental disorder [Recovering/Resolving]
  - Off label use [Unknown]

NARRATIVE: CASE EVENT DATE: 20241211
